FAERS Safety Report 13427730 (Version 1)
Quarter: 2017Q2

REPORT INFORMATION
  Report Type: Spontaneous
  Country: DE (occurrence: DE)
  Receive Date: 20170411
  Receipt Date: 20170411
  Transmission Date: 20170830
  Serious: Yes (Hospitalization, Other)
  Sender: FDA-Public Use
  Company Number: DE-009507513-1704DEU000829

PATIENT
  Age: 62 Year
  Sex: Female

DRUGS (3)
  1. INDAPAMIDE. [Concomitant]
     Active Substance: INDAPAMIDE
     Indication: HYPERTENSION
     Dosage: STRENGTH 1.5 MG, UNK
  2. ASPIRIN. [Concomitant]
     Active Substance: ASPIRIN
     Dosage: STRENGTH 100 MG, UNK
     Route: 048
     Dates: start: 20170324
  3. LORZAAR PROTECT 50MG FILMTABLETTEN [Suspect]
     Active Substance: LOSARTAN
     Indication: HYPERTENSION
     Dosage: 50 MG, ONCE DAILY
     Route: 048

REACTIONS (3)
  - Atrial fibrillation [Recovering/Resolving]
  - Hypertension [Unknown]
  - Blood potassium decreased [Unknown]

NARRATIVE: CASE EVENT DATE: 201703
